FAERS Safety Report 9056401 (Version 2)
Quarter: 2013Q1

REPORT INFORMATION
  Report Type: Spontaneous
  Country: JP (occurrence: JP)
  Receive Date: 20130130
  Receipt Date: 20130130
  Transmission Date: 20140127
  Serious: Yes (Other)
  Sender: FDA-Public Use
  Company Number: JP-BAYER-2013-007111

PATIENT
  Age: 73 Year
  Sex: Male

DRUGS (2)
  1. ACETYLSALICYLIC ACID({=100 MG) [Suspect]
     Indication: ANGINA PECTORIS
     Dosage: 100 MG, QD
     Route: 048
  2. TICPILONE [Suspect]
     Indication: ANGINA PECTORIS
     Dosage: 200 MG, QD
     Route: 048

REACTIONS (2)
  - Small intestinal haemorrhage [Recovered/Resolved]
  - Gastrointestinal vascular malformation [Recovered/Resolved]
